FAERS Safety Report 11840294 (Version 1)
Quarter: 2015Q4

REPORT INFORMATION
  Report Type: Spontaneous
  Country: US (occurrence: None)
  Receive Date: 20151215
  Receipt Date: 20151215
  Transmission Date: 20160305
  Serious: Yes (Disabling)
  Sender: FDA-Public Use
  Company Number: None

PATIENT
  Age: 46 Year
  Sex: Female
  Weight: 64.86 kg

DRUGS (4)
  1. CLONAZEPAM. [Concomitant]
     Active Substance: CLONAZEPAM
  2. VITAMIN D [Concomitant]
     Active Substance: CHOLECALCIFEROL
  3. VITAMIN B12 [Concomitant]
     Active Substance: CYANOCOBALAMIN
  4. GADAVIST [Suspect]
     Active Substance: GADOBUTROL
     Indication: SCAN WITH CONTRAST

REACTIONS (18)
  - Fine motor skill dysfunction [None]
  - Arthralgia [None]
  - Neck pain [None]
  - Musculoskeletal pain [None]
  - Hypoaesthesia [None]
  - Headache [None]
  - Impaired driving ability [None]
  - Back pain [None]
  - Gait disturbance [None]
  - Balance disorder [None]
  - Loss of proprioception [None]
  - Cough [None]
  - Musculoskeletal chest pain [None]
  - Walking aid user [None]
  - Impaired work ability [None]
  - Bone pain [None]
  - Nausea [None]
  - Visual acuity reduced [None]

NARRATIVE: CASE EVENT DATE: 20151103
